FAERS Safety Report 20035190 (Version 3)
Quarter: 2021Q4

REPORT INFORMATION
  Report Type: Spontaneous
  Country: DE (occurrence: DE)
  Receive Date: 20211104
  Receipt Date: 20211122
  Transmission Date: 20220303
  Serious: Yes (Other)
  Sender: FDA-Public Use
  Company Number: DE-APOGEPHA-20210150

PATIENT
  Age: 81 Year
  Sex: Male
  Weight: 68 kg

DRUGS (3)
  1. BICALUTAMIDE [Suspect]
     Active Substance: BICALUTAMIDE
     Indication: Product used for unknown indication
     Dosage: UNK
  2. BUSERELIN ACETATE [Suspect]
     Active Substance: BUSERELIN ACETATE
     Indication: Prostate cancer
     Dosage: MEDICINAL_PRODUCT_TMK : PROFACT DEPOT
     Route: 058
     Dates: start: 20150914, end: 20210429
  3. CYPROTERONE ACETATE [Suspect]
     Active Substance: CYPROTERONE ACETATE
     Indication: Hot flush
     Dosage: 1 DOSAGE FORM, QW
     Route: 065
     Dates: start: 20160913

REACTIONS (1)
  - Pulmonary fibrosis [Not Recovered/Not Resolved]
